FAERS Safety Report 14764653 (Version 1)
Quarter: 2018Q2

REPORT INFORMATION
  Report Type: Spontaneous
  Country: DE (occurrence: DE)
  Receive Date: 20180416
  Receipt Date: 20180416
  Transmission Date: 20180711
  Serious: Yes (Other)
  Sender: FDA-Public Use
  Company Number: DE-MYLANLABS-2018M1023291

PATIENT
  Age: 1 Day
  Sex: Male
  Weight: 2.58 kg

DRUGS (6)
  1. BISOPROLOL [Suspect]
     Active Substance: BISOPROLOL
     Indication: HYPERTENSION
     Dosage: 1.25 MG, QD
     Route: 064
  2. PARACETAMOL [Concomitant]
     Active Substance: ACETAMINOPHEN
     Indication: HEADACHE
     Dosage: UNK,IN TOTAL 3 TO 4 TABLETS DURING PREGNANCY
     Route: 064
  3. PRESINOL [Suspect]
     Active Substance: METHYLDOPA
     Indication: HYPERTENSION
     Dosage: 500 MG, QD
     Route: 064
  4. L-THYROXIN                         /00068002/ [Concomitant]
     Indication: HYPOTHYROIDISM
     Dosage: 25 ?G, QD
     Route: 064
  5. VALSARTAN. [Concomitant]
     Active Substance: VALSARTAN
     Indication: HYPERTENSION
     Dosage: 320 MG, QD
     Route: 064
  6. INSULIN HUMAN [Concomitant]
     Active Substance: INSULIN HUMAN
     Indication: GESTATIONAL DIABETES
     Dosage: UNK,START OF INSULIN THERAPY NOT KNOWN.
     Route: 064

REACTIONS (2)
  - Foetal exposure during pregnancy [Recovered/Resolved]
  - Small for dates baby [Recovered/Resolved]

NARRATIVE: CASE EVENT DATE: 20170626
